FAERS Safety Report 4487637-9 (Version None)
Quarter: 2004Q4

REPORT INFORMATION
  Report Type: 
  Country: None (occurrence: None)
  Receive Date: 20041025
  Receipt Date: 20041013
  Transmission Date: 20050328
  Serious: Yes (Hospitalization)
  Sender: FDA-Public Use
  Company Number: US010405

PATIENT
  Age: 17 Year
  Sex: Female
  Weight: 56.6996 kg

DRUGS (3)
  1. GABITRIL [Suspect]
     Indication: AFFECTIVE DISORDER
     Dates: start: 20021001, end: 20021116
  2. GABITRIL [Suspect]
     Indication: DEPRESSION
     Dates: start: 20021001, end: 20021116
  3. WELLBUTRIN [Suspect]
     Indication: DEPRESSION
     Dates: start: 20021001

REACTIONS (8)
  - AURA [None]
  - COMA [None]
  - COMPLEX PARTIAL SEIZURES [None]
  - GRAND MAL CONVULSION [None]
  - PAROSMIA [None]
  - ROAD TRAFFIC ACCIDENT [None]
  - STATUS EPILEPTICUS [None]
  - TREATMENT NONCOMPLIANCE [None]
